FAERS Safety Report 8815615 (Version 2)
Quarter: 2014Q3

REPORT INFORMATION
  Report Type: Spontaneous
  Country: US (occurrence: US)
  Receive Date: 20120928
  Receipt Date: 20140718
  Transmission Date: 20150326
  Serious: Yes (Hospitalization)
  Sender: FDA-Public Use
  Company Number: US-009507513-1209USA010198

PATIENT
  Sex: Female
  Weight: 113.83 kg

DRUGS (2)
  1. NUVARING [Suspect]
     Active Substance: ETHINYL ESTRADIOL\ETONOGESTREL
     Dosage: UNK
     Route: 067
     Dates: start: 200905
  2. NUVARING [Suspect]
     Active Substance: ETHINYL ESTRADIOL\ETONOGESTREL
     Indication: CONTRACEPTION
     Dosage: UNK
     Route: 067
     Dates: start: 20081231

REACTIONS (10)
  - Palpitations [Unknown]
  - Bladder discomfort [Unknown]
  - Pericarditis [Unknown]
  - Hypertension [Unknown]
  - Rash [Unknown]
  - Fungal infection [Unknown]
  - Chest pain [Unknown]
  - Myocarditis [Unknown]
  - Eczema [Unknown]
  - Back pain [Unknown]

NARRATIVE: CASE EVENT DATE: 20080922
